FAERS Safety Report 7935099-9 (Version None)
Quarter: 2011Q4

REPORT INFORMATION
  Report Type: 
  Country: None (occurrence: None)
  Receive Date: 20111122
  Receipt Date: 20110828
  Transmission Date: 20120403
  Serious: No
  Sender: FDA-Public Use
  Company Number: US-BAYER-2011-085088

PATIENT
  Sex: Female

DRUGS (1)
  1. ALEVE (CAPLET) [Suspect]
     Indication: PRODUCT USED FOR UNKNOWN INDICATION
     Dosage: 1 DF, ONCE
     Route: 048
     Dates: start: 20110827, end: 20110827

REACTIONS (2)
  - DYSPEPSIA [None]
  - ABDOMINAL PAIN UPPER [None]
